FAERS Safety Report 7021683-6 (Version None)
Quarter: 2010Q3

REPORT INFORMATION
  Report Type: 
  Country: None (occurrence: None)
  Receive Date: 20100928
  Receipt Date: 20100916
  Transmission Date: 20110219
  Serious: Yes (Other)
  Sender: FDA-Public Use
  Company Number: 2010AP002020

PATIENT
  Age: 76 Year
  Sex: Female

DRUGS (5)
  1. OMEPRAZOLE [Suspect]
     Indication: TEMPORAL ARTERITIS
     Dosage: 20 MG;UNKNOWN;QD
  2. ATENOLOL [Concomitant]
  3. SIMVASTATIN [Concomitant]
  4. ISOSORBIDE MONONITRATE [Concomitant]
  5. PREDNISOLONE [Concomitant]

REACTIONS (1)
  - CUTANEOUS LUPUS ERYTHEMATOSUS [None]
